FAERS Safety Report 6087401-3 (Version None)
Quarter: 2009Q1

REPORT INFORMATION
  Report Type: 
  Country: None (occurrence: None)
  Receive Date: 20090219
  Receipt Date: 20080423
  Transmission Date: 20090719
  Serious: Yes (Hospitalization)
  Sender: FDA-Public Use
  Company Number: 560316

PATIENT
  Age: 10 Month
  Sex: Male

DRUGS (10)
  1. GANCICLOVIR [Suspect]
     Indication: DRUG USE FOR UNKNOWN INDICATION
  2. IMURAN [Concomitant]
  3. TACROLIMUS [Concomitant]
  4. NORVASC [Concomitant]
  5. PROPRANOLOL [Concomitant]
  6. BACTRIM [Concomitant]
  7. NYSTATIN [Concomitant]
  8. MAGNESIUM SULFATE [Concomitant]
  9. ASPIRIN [Concomitant]
  10. PREDNISONE TAB [Concomitant]

REACTIONS (3)
  - DIARRHOEA [None]
  - HEPATIC ENZYME INCREASED [None]
  - HYPONATRAEMIA [None]
